FAERS Safety Report 5952127-0 (Version None)
Quarter: 2008Q4

REPORT INFORMATION
  Report Type: 
  Country: None (occurrence: None)
  Receive Date: 20081113
  Receipt Date: 20080520
  Transmission Date: 20090506
  Serious: No
  Sender: FDA-Public Use
  Company Number: A0728802A

PATIENT
  Age: 38 Year
  Sex: Female

DRUGS (2)
  1. COREG [Suspect]
     Indication: CARDIOMYOPATHY
     Dosage: 20MG PER DAY
     Route: 048
     Dates: start: 20080301
  2. LISINOPRIL [Concomitant]

REACTIONS (1)
  - HYPOAESTHESIA [None]
